FAERS Safety Report 6077640-X (Version None)
Quarter: 2009Q1

REPORT INFORMATION
  Report Type: 
  Country: None (occurrence: None)
  Receive Date: 20090213
  Receipt Date: 20090206
  Transmission Date: 20090719
  Serious: Yes (Hospitalization, Other)
  Sender: FDA-Public Use
  Company Number: US-ELI_LILLY_AND_COMPANY-US200812002415

PATIENT
  Sex: Male
  Weight: 108.84 kg

DRUGS (20)
  1. BYETTA [Suspect]
     Dosage: 5 UG, 2/D
     Route: 065
     Dates: start: 20080501
  2. CEFDINIR [Concomitant]
     Dosage: 300 MG, UNK
  3. AZITHROMYCIN [Concomitant]
     Dosage: 500 MG, UNK
  4. HYDROCORTISONE-NEOMYCIN-POLYMYXIN B [Concomitant]
     Route: 047
  5. OMEPRAZOLE [Concomitant]
     Indication: PROPHYLAXIS
     Dosage: 40 MG, UNK
  6. CEPHALEXIN [Concomitant]
     Dosage: 500 MG, UNK
  7. NSAID'S [Concomitant]
     Indication: ARTHRITIS
     Dosage: UNK, DAILY (1/D)
  8. NORTRIPTYLINE HCL [Concomitant]
     Indication: PAIN
     Dosage: 10 MG, EACH EVENING
  9. GABAPENTIN [Concomitant]
     Indication: PAIN
     Dosage: 100 MG, DAILY (1/D)
  10. PRAVACHOL [Concomitant]
     Dosage: 80 MG, EACH EVENING
  11. PIROXICAM [Concomitant]
     Indication: PAIN
     Dosage: 20 MG, DAILY (1/D)
  12. LISINOPRIL [Concomitant]
     Indication: BLOOD PRESSURE INCREASED
     Dosage: 40 MG, DAILY (1/D)
  13. INSULATARD NPH HUMAN [Concomitant]
     Indication: TYPE 2 DIABETES MELLITUS
     Dosage: 40 U, 2/D
  14. PRAVASTATIN [Concomitant]
     Indication: BLOOD CHOLESTEROL INCREASED
  15. VARDENAFIL [Concomitant]
  16. FULVISTATIN [Concomitant]
  17. TRAMADOL [Concomitant]
     Indication: PAIN
  18. ASPIRIN [Concomitant]
     Dosage: 325 MG, DAILY (1/D)
     Route: 048
  19. NIACIN [Concomitant]
  20. FISH OIL [Concomitant]

REACTIONS (3)
  - GASTRITIS [None]
  - GASTROINTESTINAL HAEMORRHAGE [None]
  - PANCREATITIS [None]
